FAERS Safety Report 14288227 (Version 4)
Quarter: 2018Q1

REPORT INFORMATION
  Report Type: Spontaneous
  Country: FR (occurrence: IT)
  Receive Date: 20171214
  Receipt Date: 20180202
  Transmission Date: 20180509
  Serious: Yes (Hospitalization, Other)
  Sender: FDA-Public Use
  Company Number: IT-TEVA-2017-IT-830519

PATIENT
  Age: 41 Year
  Sex: Female

DRUGS (5)
  1. ESTRADIOL. [Suspect]
     Active Substance: ESTRADIOL
     Indication: FEMINISATION ACQUIRED
     Dosage: 1 MILLIGRAM DAILY;
     Route: 062
  2. CYPROTERONE ACETATE [Suspect]
     Active Substance: CYPROTERONE ACETATE
     Indication: TRANSGENDER HORMONAL THERAPY
     Dosage: 50 MILLIGRAM DAILY;
     Route: 065
  3. LEUPRORELIN ACETATE [Suspect]
     Active Substance: LEUPROLIDE ACETATE
     Indication: TRANSGENDER HORMONAL THERAPY
     Route: 065
  4. ESTRADIOL. [Suspect]
     Active Substance: ESTRADIOL
     Indication: TRANSGENDER HORMONAL THERAPY
     Dosage: 2 MILLIGRAM DAILY;
     Route: 062
  5. ESTRADIOL. [Suspect]
     Active Substance: ESTRADIOL
     Dosage: 3 MILLIGRAM DAILY;
     Route: 062

REACTIONS (2)
  - Meningioma [Recovered/Resolved]
  - Off label use [Unknown]
